FAERS Safety Report 6375550-1 (Version None)
Quarter: 2009Q3

REPORT INFORMATION
  Report Type: 
  Country: None (occurrence: None)
  Receive Date: 20090924
  Receipt Date: 20090723
  Transmission Date: 20100115
  Serious: Yes (Other)
  Sender: FDA-Public Use
  Company Number: ES-BAYER-200930456GPV

PATIENT
  Sex: Female

DRUGS (1)
  1. ASPIRIN [Suspect]
     Indication: DRUG USE FOR UNKNOWN INDICATION
     Route: 048
     Dates: start: 20090101

REACTIONS (3)
  - DIZZINESS [None]
  - HYPERSOMNIA [None]
  - SYNCOPE [None]
